FAERS Safety Report 6269627-9 (Version None)
Quarter: 2009Q3

REPORT INFORMATION
  Report Type: 
  Country: None (occurrence: None)
  Receive Date: 20090714
  Receipt Date: 20090702
  Transmission Date: 20100115
  Serious: Yes (Death, Life-Threatening)
  Sender: FDA-Public Use
  Company Number: 314965

PATIENT
  Age: 80 Year
  Sex: Male
  Weight: 68 kg

DRUGS (14)
  1. LORAZEPAM [Suspect]
     Indication: ANXIETY
     Dosage: 2 MG, ONE DAY, INTRAVENOUS
     Route: 042
     Dates: start: 20090630, end: 20090630
  2. PROVENTIL-HFA [Concomitant]
  3. INSULIN [Concomitant]
  4. SODIUM CHLORIDE [Concomitant]
  5. SOLU-MEDROL [Concomitant]
  6. TYENOL [Concomitant]
  7. MIRALAX [Concomitant]
  8. SODIUM POLYSTYRENE SULFONATE [Concomitant]
  9. PREDNISONE TAB [Concomitant]
  10. VIBRAMYCIN [Concomitant]
  11. NYSTATIN [Concomitant]
  12. CLEOCIN [Concomitant]
  13. GENTAMICIN [Concomitant]
  14. LASIX [Concomitant]

REACTIONS (3)
  - FOAMING AT MOUTH [None]
  - LETHARGY [None]
  - UNRESPONSIVE TO STIMULI [None]
